FAERS Safety Report 16861373 (Version 2)
Quarter: 2019Q4

REPORT INFORMATION
  Report Type: Spontaneous
  Country: DE (occurrence: DE)
  Receive Date: 20190927
  Receipt Date: 20191024
  Transmission Date: 20200122
  Serious: Yes (Hospitalization, Other)
  Sender: FDA-Public Use
  Company Number: PHHY2019DE221920

PATIENT
  Sex: Female
  Weight: 74 kg

DRUGS (2)
  1. SALOFALK (MESALAZINE) [Suspect]
     Active Substance: MESALAMINE
     Indication: CROHN^S DISEASE
     Dosage: 3 G, TID
     Route: 065
     Dates: start: 20190601
  2. HYRIMOZ [Suspect]
     Active Substance: ADALIMUMAB-ADAZ
     Indication: PRODUCT USED FOR UNKNOWN INDICATION
     Dosage: 40 MG, UNK
     Route: 065
     Dates: start: 20190601

REACTIONS (3)
  - Rectal prolapse [Recovered/Resolved]
  - Pneumonia [Unknown]
  - Ileal ulcer perforation [Unknown]

NARRATIVE: CASE EVENT DATE: 20190611
